FAERS Safety Report 10259621 (Version 2)
Quarter: 2014Q2

REPORT INFORMATION
  Report Type: Report from Study
  Country: US (occurrence: US)
  Receive Date: 20140625
  Receipt Date: 20140625
  Transmission Date: 20141212
  Serious: Yes (Other)
  Sender: FDA-Public Use
  Company Number: PHEH2014US010526

PATIENT
  Age: 52 Year
  Sex: Female
  Weight: 108.84 kg

DRUGS (3)
  1. GILENYA [Suspect]
     Indication: MULTIPLE SCLEROSIS
     Dosage: 0.5 MG, QD
     Route: 048
     Dates: start: 20140513
  2. ESGIC [Concomitant]
     Dosage: 1 DF, Q6H
     Route: 048
  3. BACLOFEN [Concomitant]
     Dosage: UNK UKN, QHS
     Route: 048

REACTIONS (3)
  - Hypersensitivity [Unknown]
  - Dyspnoea [Not Recovered/Not Resolved]
  - Cough [Not Recovered/Not Resolved]
